FAERS Safety Report 21056397 (Version 1)
Quarter: 2022Q3

REPORT INFORMATION
  Report Type: Spontaneous
  Country: CN (occurrence: None)
  Receive Date: 20220708
  Receipt Date: 20220708
  Transmission Date: 20221026
  Serious: Yes (Other)
  Sender: FDA-Public Use
  Company Number: CN-ROCHE-3129398

PATIENT
  Age: 56 Year
  Sex: Male

DRUGS (7)
  1. AVASTIN [Suspect]
     Active Substance: BEVACIZUMAB
     Indication: Hepatic cancer
     Dosage: 28/MAY/2021, 22/JUN/2021, 13/JUL/2021, 31/AUG/2021, AND 28/SEP/2021
     Route: 065
  2. TECENTRIQ [Suspect]
     Active Substance: ATEZOLIZUMAB
     Indication: Hepatic cancer
     Dosage: 28/MAY/2021, 22/JUN/2021, 13/JUL/2021, 31/AUG/2021, AND 28/SEP/2021
     Route: 065
  3. SORAFENIB [Concomitant]
     Active Substance: SORAFENIB
     Indication: Hepatic cancer
     Dates: start: 20191122
  4. SORAFENIB [Concomitant]
     Active Substance: SORAFENIB
     Dates: start: 20200613
  5. METHYLPREDNISOLONE [Concomitant]
     Active Substance: METHYLPREDNISOLONE
     Indication: Immunosuppression
     Dosage: 500 MG PER DAY TAPERED TO 8 MG PER DAY
  6. MYCOPHENOLATE MOFETIL [Concomitant]
     Active Substance: MYCOPHENOLATE MOFETIL
     Indication: Immunosuppression
  7. TACROLIMUS [Concomitant]
     Active Substance: TACROLIMUS
     Indication: Immunosuppression
     Dosage: TARGET 8 - 12 NG/ML

REACTIONS (8)
  - Abdominal distension [Unknown]
  - Decreased appetite [Unknown]
  - Hypoproteinaemia [Unknown]
  - Ascites [Unknown]
  - Gastrointestinal perforation [Recovering/Resolving]
  - Gastric perforation [Unknown]
  - Gastric haemorrhage [Unknown]
  - Ventricular fibrillation [Recovered/Resolved]
